FAERS Safety Report 5445790-4 (Version None)
Quarter: 2007Q3

REPORT INFORMATION
  Report Type: 
  Country: None (occurrence: None)
  Receive Date: 20070904
  Receipt Date: 20070820
  Transmission Date: 20080115
  Serious: Yes (Hospitalization, Other)
  Sender: FDA-Public Use
  Company Number: THQ2007A00713

PATIENT
  Age: 63 Year
  Sex: Male

DRUGS (13)
  1. PIOGLITAZONE HCL [Suspect]
     Indication: TYPE 2 DIABETES MELLITUS
     Dosage: 20 MG (30 MG,1 IN 1 D), PER ORAL
     Route: 048
     Dates: start: 20030702
  2. DILANTIN [Concomitant]
  3. TEGRETOL [Concomitant]
  4. METFORMIN HCL [Concomitant]
  5. GLYBURIDE [Concomitant]
  6. CORGARD (HADOLOL) [Concomitant]
  7. ACCUPRIL [Concomitant]
  8. FOLIC ACID [Concomitant]
  9. VITAMIN B12 [Concomitant]
  10. ATIVAN [Concomitant]
  11. LIPITOR [Concomitant]
  12. ADALAT [Concomitant]
  13. INSULIN [Concomitant]

REACTIONS (4)
  - INAPPROPRIATE ANTIDIURETIC HORMONE SECRETION [None]
  - IRON DEFICIENCY ANAEMIA [None]
  - RECTAL CANCER STAGE II [None]
  - URINARY RETENTION [None]
